FAERS Safety Report 4551675-8 (Version None)
Quarter: 2005Q1

REPORT INFORMATION
  Report Type: 
  Country: None (occurrence: None)
  Receive Date: 20050111
  Receipt Date: 20041220
  Transmission Date: 20050727
  Serious: Yes (Death)
  Sender: FDA-Public Use
  Company Number: 2004121845

PATIENT
  Age: 75 Year
  Sex: Male
  Weight: 93 kg

DRUGS (8)
  1. CELEBREX [Suspect]
     Indication: NON-SMALL CELL LUNG CANCER
     Dosage: 800 MG (400 MG, 2 IN 1 D), ORAL
     Route: 048
     Dates: start: 20041102, end: 20041124
  2. GEFITINIB (GEFITINIB) [Suspect]
     Indication: NON-SMALL CELL LUNG CANCER
     Dosage: 250 MG (250 MG, 1 IN 1 D), ORAL
     Route: 048
     Dates: start: 20041102, end: 20041122
  3. ATENOLOL [Concomitant]
  4. COMBIVENT [Concomitant]
  5. WARFARIN SODIUM [Concomitant]
  6. LORATADINE [Concomitant]
  7. NICOTINIC ACID [Concomitant]
  8. HYDRALAZINE HCL TAB [Concomitant]

REACTIONS (1)
  - PULMONARY EMBOLISM [None]
